FAERS Safety Report 15185335 (Version 1)
Quarter: 2018Q3

REPORT INFORMATION
  Report Type: Report from Study
  Country: LT (occurrence: LT)
  Receive Date: 20180723
  Receipt Date: 20180723
  Transmission Date: 20181010
  Serious: Yes (Other)
  Sender: FDA-Public Use
  Company Number: LT-SHIRE-LT201621115

PATIENT

DRUGS (1)
  1. FACTOR VIII INHIBITOR BYPASSING FRACTION; BAXJECT II NF [Suspect]
     Active Substance: ANTI-INHIBITOR COAGULANT COMPLEX
     Indication: HAEMOPHILIA
     Dosage: 3000 UNK, UNK
     Route: 065

REACTIONS (7)
  - Asthenia [Unknown]
  - Haemorrhage [Unknown]
  - Depressed mood [Unknown]
  - Contusion [Not Recovered/Not Resolved]
  - Haemarthrosis [Unknown]
  - Pallor [Unknown]
  - Vomiting [Unknown]

NARRATIVE: CASE EVENT DATE: 20160803
